FAERS Safety Report 23254185 (Version 1)
Quarter: 2023Q4

REPORT INFORMATION
  Report Type: Spontaneous
  Country: NL (occurrence: NL)
  Receive Date: 20231202
  Receipt Date: 20231202
  Transmission Date: 20240110
  Serious: Yes (Death, Congenital Anomaly, Other)
  Sender: FDA-Public Use
  Company Number: None

PATIENT

DRUGS (3)
  1. ADALIMUMAB [Suspect]
     Active Substance: ADALIMUMAB\ISOPROPYL ALCOHOL
     Indication: Maternal exposure timing unspecified
     Dosage: 40 MG/WEEK SC
     Route: 064
     Dates: start: 20230712
  2. ADALIMUMAB [Suspect]
     Active Substance: ADALIMUMAB\ISOPROPYL ALCOHOL
     Dosage: LAST ADMIN DATE: 2023
     Route: 064
     Dates: start: 20230307
  3. THIOGUANINE ANHYDROUS [Suspect]
     Active Substance: THIOGUANINE ANHYDROUS
     Indication: Maternal exposure timing unspecified
     Dosage: 1 DD 10 MG
     Route: 065
     Dates: start: 20230307

REACTIONS (7)
  - Abortion induced [Fatal]
  - Foetal growth restriction [Recovered/Resolved]
  - Congenital cystic kidney disease [Recovered/Resolved]
  - Aberrant aortic arch [Recovered/Resolved]
  - Congenital cerebellar agenesis [Recovered/Resolved]
  - Gastrointestinal disorder congenital [Recovered/Resolved]
  - Foetal exposure during pregnancy [Unknown]
